FAERS Safety Report 10223028 (Version 2)
Quarter: 2014Q3

REPORT INFORMATION
  Report Type: Report from Study
  Country: US (occurrence: US)
  Receive Date: 20140607
  Receipt Date: 20140724
  Transmission Date: 20150326
  Serious: Yes (Death)
  Sender: FDA-Public Use
  Company Number: PHEH2014US011404

PATIENT
  Age: 82 Year
  Sex: Male

DRUGS (1)
  1. TOBI [Suspect]
     Active Substance: TOBRAMYCIN
     Indication: BRONCHIECTASIS
     Dosage: 300 UG, BID
     Route: 055
     Dates: start: 20130610, end: 20131213

REACTIONS (1)
  - Death [Fatal]

NARRATIVE: CASE EVENT DATE: 20140323
